FAERS Safety Report 21279880 (Version 1)
Quarter: 2022Q3

REPORT INFORMATION
  Report Type: Spontaneous
  Country: DK (occurrence: DK)
  Receive Date: 20220901
  Receipt Date: 20220901
  Transmission Date: 20221027
  Serious: Yes (Other)
  Sender: FDA-Public Use
  Company Number: None

PATIENT
  Age: 68 Year
  Sex: Male

DRUGS (2)
  1. GABAPENTIN [Suspect]
     Active Substance: GABAPENTIN
     Indication: Occipital neuralgia
     Dosage: DOSAGE: UNKNOWN, STRENGTH: UNKNOWN, DURATION: 2 DAYS
     Dates: start: 20180705, end: 20180707
  2. CARBAMAZEPINE [Suspect]
     Active Substance: CARBAMAZEPINE
     Indication: Occipital neuralgia
     Dosage: DOSAGE: INCREASED TO 300MG X3 ON 03JUL2018 AND DOSAGE WAS 300+600MG ON 07JUL2018. STRENGTH: UNKNOWN,
     Dates: start: 20180701

REACTIONS (7)
  - Dysarthria [Recovered/Resolved]
  - Dizziness [Recovered/Resolved]
  - Confusional state [Recovered/Resolved]
  - Coordination abnormal [Recovered/Resolved]
  - Balance disorder [Recovered/Resolved]
  - Dysuria [Recovered/Resolved]
  - Renal impairment [Not Recovered/Not Resolved]

NARRATIVE: CASE EVENT DATE: 20180701
